FAERS Safety Report 21671985 (Version 1)
Quarter: 2022Q4

REPORT INFORMATION
  Report Type: Report from Study
  Country: DE (occurrence: DE)
  Receive Date: 20221202
  Receipt Date: 20221202
  Transmission Date: 20230112
  Serious: Yes (Death, Hospitalization)
  Sender: FDA-Public Use
  Company Number: DE-BAYER-2022A164496

PATIENT
  Age: 80 Year
  Sex: Female

DRUGS (1)
  1. VENTAVIS [Suspect]
     Active Substance: ILOPROST
     Indication: Pulmonary arterial hypertension
     Dosage: UNK, QID
     Route: 055
     Dates: start: 20210920, end: 20221201

REACTIONS (2)
  - Dyspnoea [Fatal]
  - Inappropriate schedule of product administration [Unknown]
